FAERS Safety Report 7226950-9 (Version None)
Quarter: 2011Q1

REPORT INFORMATION
  Report Type: 
  Country: None (occurrence: None)
  Receive Date: 20110111
  Receipt Date: 20110111
  Transmission Date: 20110831
  Serious: Yes (Life-Threatening, Hospitalization, Disabling)
  Sender: FDA-Public Use
  Company Number: None

PATIENT
  Sex: Female
  Weight: 58.514 kg

DRUGS (2)
  1. ZOLOFT [Suspect]
     Dosage: 1 100 MG TAKE ONE AT NIGHT AT NIGHT
     Dates: start: 20101101
  2. ZOLOFT [Suspect]
     Dosage: 1 100 MG TAKE ONE AT NIGHT AT NIGHT
     Dates: start: 20101001

REACTIONS (6)
  - INCORRECT DOSE ADMINISTERED [None]
  - IMPAIRED WORK ABILITY [None]
  - HALLUCINATION, AUDITORY [None]
  - AMNESIA [None]
  - SPEECH DISORDER [None]
  - LIVER DISORDER [None]
